FAERS Safety Report 10749827 (Version 3)
Quarter: 2015Q2

REPORT INFORMATION
  Report Type: Spontaneous
  Country: US (occurrence: US)
  Receive Date: 20150129
  Receipt Date: 20150512
  Transmission Date: 20150821
  Serious: Yes (Life-Threatening, Hospitalization, Other)
  Sender: FDA-Public Use
  Company Number: US-GLAXOSMITHKLINE-US2015010697

PATIENT
  Sex: Female

DRUGS (9)
  1. NORCO [Concomitant]
     Active Substance: ACETAMINOPHEN\HYDROCODONE BITARTRATE
  2. SUMATRIPTAN. [Concomitant]
     Active Substance: SUMATRIPTAN
  3. ATIVAN [Concomitant]
     Active Substance: LORAZEPAM
  4. BENLYSTA [Suspect]
     Active Substance: BELIMUMAB
     Indication: SYSTEMIC LUPUS ERYTHEMATOSUS
     Dosage: 700 MG, VA
     Route: 042
     Dates: start: 20110617
  5. LOSARTAN [Concomitant]
     Active Substance: LOSARTAN
  6. ALBUTEROL. [Concomitant]
     Active Substance: ALBUTEROL
  7. METHOTREXATE [Concomitant]
     Active Substance: METHOTREXATE
  8. LAMICTAL [Suspect]
     Active Substance: LAMOTRIGINE
     Indication: SEIZURE
     Dosage: UNK
  9. LYRICA [Concomitant]
     Active Substance: PREGABALIN

REACTIONS (4)
  - Seizure [Unknown]
  - Encephalopathy [Unknown]
  - Drug ineffective [Unknown]
  - Progressive multifocal leukoencephalopathy [Unknown]
